FAERS Safety Report 5076174-9 (Version None)
Quarter: 2006Q3

REPORT INFORMATION
  Report Type: 
  Country: None (occurrence: None)
  Receive Date: 20060725
  Receipt Date: 20060519
  Transmission Date: 20061208
  Serious: No
  Sender: FDA-Public Use
  Company Number: 200610861BWH

PATIENT
  Age: 57 Year
  Sex: Male
  Weight: 74.3899 kg

DRUGS (6)
  1. NEXAVAR [Suspect]
     Indication: RENAL CELL CARCINOMA STAGE UNSPECIFIED
     Dosage: 400 MG, BID, ORAL
     Route: 048
     Dates: start: 20060125
  2. LIPITOR [Concomitant]
  3. LEXAPRO [Concomitant]
  4. CORVITE VITAMIN [Concomitant]
  5. MARINOL [Concomitant]
  6. IBUPROFEN [Concomitant]

REACTIONS (5)
  - ACNE [None]
  - DIARRHOEA [None]
  - DYSGEUSIA [None]
  - HYPERKERATOSIS [None]
  - WEIGHT DECREASED [None]
